FAERS Safety Report 9053225 (Version 1)
Quarter: 2013Q1

REPORT INFORMATION
  Report Type: Spontaneous
  Country: CA (occurrence: CA)
  Receive Date: 20130208
  Receipt Date: 20130208
  Transmission Date: 20140127
  Serious: Yes (Hospitalization, Other)
  Sender: FDA-Public Use
  Company Number: CA-AMGEN-CANSP2011066483

PATIENT
  Age: 80 Year
  Sex: Female
  Weight: 50 kg

DRUGS (2)
  1. PROLIA [Suspect]
     Indication: OSTEOPOROSIS POSTMENOPAUSAL
     Dosage: 60 MG, Q6MO
     Dates: start: 20110708
  2. CORTISONE [Concomitant]
     Indication: LIGAMENT RUPTURE

REACTIONS (11)
  - Abdominal pain [Not Recovered/Not Resolved]
  - Myocardial infarction [Recovered/Resolved]
  - Urinary tract infection [Not Recovered/Not Resolved]
  - Arrhythmia [Unknown]
  - Dizziness [Not Recovered/Not Resolved]
  - Weight decreased [Not Recovered/Not Resolved]
  - Nausea [Not Recovered/Not Resolved]
  - Headache [Not Recovered/Not Resolved]
  - Decreased appetite [Not Recovered/Not Resolved]
  - Pain [Unknown]
  - Mobility decreased [Not Recovered/Not Resolved]
